FAERS Safety Report 6806585-X (Version None)
Quarter: 2010Q2

REPORT INFORMATION
  Report Type: 
  Country: None (occurrence: None)
  Receive Date: 20100629
  Receipt Date: 20080527
  Transmission Date: 20101027
  Serious: Yes (Other)
  Sender: FDA-Public Use
  Company Number: US-PFIZER INC-2008017223

PATIENT
  Sex: Male
  Weight: 93.181 kg

DRUGS (4)
  1. TIKOSYN [Suspect]
     Indication: ATRIAL FIBRILLATION
     Dosage: TWICE DAILY
     Route: 048
     Dates: start: 20071101, end: 20080220
  2. TIKOSYN [Suspect]
  3. COUMADIN [Concomitant]
     Dates: end: 20080101
  4. ASPIRINE [Concomitant]
     Dates: start: 20080101

REACTIONS (5)
  - BLOOD POTASSIUM DECREASED [None]
  - CYSTITIS [None]
  - HEART RATE INCREASED [None]
  - LEUKOPENIA [None]
  - LUNG INFECTION [None]
